FAERS Safety Report 14334512 (Version 1)
Quarter: 2017Q4

REPORT INFORMATION
  Report Type: Spontaneous
  Country: US (occurrence: US)
  Receive Date: 20171228
  Receipt Date: 20171228
  Transmission Date: 20180321
  Serious: No
  Sender: FDA-Public Use
  Company Number: US-009507513-1712USA001930

PATIENT
  Age: 39 Year
  Sex: Female

DRUGS (5)
  1. OXYCODONE [Concomitant]
     Active Substance: OXYCODONE
  2. ADDERALL [Concomitant]
     Active Substance: AMPHETAMINE ASPARTATE\AMPHETAMINE SULFATE\DEXTROAMPHETAMINE SACCHARATE\DEXTROAMPHETAMINE SULFATE
  3. NEXPLANON [Suspect]
     Active Substance: ETONOGESTREL
     Indication: CONTRACEPTION
     Dosage: 1 IMPLNAT (68 MG), UNK
     Route: 059
     Dates: start: 20171106, end: 20171129
  4. CLONAZEPAM. [Concomitant]
     Active Substance: CLONAZEPAM
  5. OMEPRAZOLE. [Concomitant]
     Active Substance: OMEPRAZOLE

REACTIONS (5)
  - Metrorrhagia [Unknown]
  - Dysphonia [Unknown]
  - Rash [Unknown]
  - Swollen tongue [Unknown]
  - Tongue biting [Unknown]

NARRATIVE: CASE EVENT DATE: 20171106
